FAERS Safety Report 10393041 (Version 1)
Quarter: 2014Q3

REPORT INFORMATION
  Report Type: Spontaneous
  Country: US (occurrence: US)
  Receive Date: 20140819
  Receipt Date: 20140819
  Transmission Date: 20150326
  Serious: Yes (Other)
  Sender: FDA-Public Use
  Company Number: US-BAYER-2014-121404

PATIENT
  Age: 41 Year
  Sex: Female

DRUGS (1)
  1. MIRENA [Suspect]
     Active Substance: LEVONORGESTREL
     Indication: MENSTRUAL CYCLE MANAGEMENT
     Dosage: 20 MCG/24HR, CONT
     Route: 015
     Dates: start: 2013

REACTIONS (8)
  - Device expulsion [None]
  - Loss of consciousness [None]
  - Pain [None]
  - Mental impairment [None]
  - Menorrhagia [None]
  - Uterine injury [None]
  - Genital haemorrhage [None]
  - Procedural pain [None]

NARRATIVE: CASE EVENT DATE: 2013
